FAERS Safety Report 9518507 (Version 1)
Quarter: 2013Q3

REPORT INFORMATION
  Report Type: Spontaneous
  Country: US (occurrence: US)
  Receive Date: 20130912
  Receipt Date: 20130912
  Transmission Date: 20140515
  Serious: Yes (Hospitalization)
  Sender: FDA-Public Use
  Company Number: US-BAYER-2013-109872

PATIENT
  Age: 45 Year
  Sex: Female

DRUGS (6)
  1. YASMIN [Suspect]
  2. OCELLA [Suspect]
  3. TRAZODONE [Concomitant]
  4. FLUOXETINE HCL [Concomitant]
  5. IMITREX [Concomitant]
  6. INTEGRELIN [Concomitant]

REACTIONS (1)
  - Acute myocardial infarction [None]
